FAERS Safety Report 8843587 (Version 2)
Quarter: 2015Q3

REPORT INFORMATION
  Report Type: Report from Study
  Country: US (occurrence: US)
  Receive Date: 20121016
  Receipt Date: 20150824
  Transmission Date: 20151125
  Serious: Yes (Hospitalization)
  Sender: FDA-Public Use
  Company Number: US-ROCHE-1140418

PATIENT
  Sex: Female
  Weight: 70.83 kg

DRUGS (5)
  1. NUTROPIN [Suspect]
     Active Substance: SOMATROPIN
     Route: 058
  2. TESTOGEL [Concomitant]
     Active Substance: TESTOSTERONE
     Dosage: APPLY 1/2 TO UPPER ARM OF QD
     Route: 065
  3. MICRONIZED PROGESTERONE [Concomitant]
     Route: 065
  4. NUTROPIN [Suspect]
     Active Substance: SOMATROPIN
     Indication: HYPOPITUITARISM
     Route: 058
  5. NUTROPIN [Suspect]
     Active Substance: SOMATROPIN
     Indication: DWARFISM
     Route: 058

REACTIONS (6)
  - Elbow operation [Unknown]
  - Fat tissue decreased [Unknown]
  - Seasonal allergy [Unknown]
  - Stress [Unknown]
  - Joint swelling [Unknown]
  - Muscle hypertrophy [Unknown]
